FAERS Safety Report 4319210-7 (Version None)
Quarter: 2004Q1

REPORT INFORMATION
  Report Type: 
  Country: None (occurrence: None)
  Receive Date: 20040316
  Receipt Date: 20040227
  Transmission Date: 20041129
  Serious: Yes (Hospitalization)
  Sender: FDA-Public Use
  Company Number: JP_040202614

PATIENT
  Age: 66 Year
  Sex: Male

DRUGS (4)
  1. ZYPREXA [Suspect]
     Indication: DEMENTIA
     Dosage: 7.5 MG/DAY
     Route: 048
     Dates: end: 20030501
  2. ZYPREXA [Suspect]
     Indication: PSYCHIATRIC SYMPTOM
     Dosage: 7.5 MG/DAY
     Route: 048
     Dates: end: 20030501
  3. DONEPEZIL HCL [Concomitant]
  4. TRIHEXYPHENIDYL HCL [Concomitant]

REACTIONS (13)
  - BEDRIDDEN [None]
  - CEREBRAL ATROPHY [None]
  - CONDITION AGGRAVATED [None]
  - DEMENTIA [None]
  - DISORIENTATION [None]
  - DISTURBANCE IN ATTENTION [None]
  - EXCITABILITY [None]
  - MUSCLE RIGIDITY [None]
  - NUCHAL RIGIDITY [None]
  - PARKINSONISM [None]
  - RESTLESSNESS [None]
  - SEDATION [None]
  - TREMOR [None]
